APPROVED DRUG PRODUCT: BUPRENORPHINE HYDROCHLORIDE
Active Ingredient: BUPRENORPHINE HYDROCHLORIDE
Strength: EQ 0.3MG BASE/ML
Dosage Form/Route: INJECTABLE;INJECTION
Application: A078331 | Product #001
Applicant: AMERICAN REGENT INC
Approved: Mar 27, 2007 | RLD: No | RS: No | Type: DISCN